FAERS Safety Report 19082438 (Version 1)
Quarter: 2021Q2

REPORT INFORMATION
  Report Type: Report from Study
  Country: US (occurrence: US)
  Receive Date: 20210401
  Receipt Date: 20210401
  Transmission Date: 20210717
  Serious: Yes (Hospitalization)
  Sender: FDA-Public Use
  Company Number: US-BAYER-2021-105361

PATIENT
  Age: 69 Year
  Sex: Male
  Weight: 102.95 kg

DRUGS (6)
  1. XARELTO [Concomitant]
     Active Substance: RIVAROXABAN
     Dosage: UNK
  2. ADEMPAS [Suspect]
     Active Substance: RIOCIGUAT
     Indication: PULMONARY ARTERIAL HYPERTENSION
     Dosage: 2.5 MG, TID
     Route: 048
  3. ADEMPAS [Suspect]
     Active Substance: RIOCIGUAT
     Indication: PULMONARY ARTERIAL HYPERTENSION
     Dosage: UNK
     Route: 048
     Dates: start: 20191015
  4. ADEMPAS [Suspect]
     Active Substance: RIOCIGUAT
     Indication: PULMONARY ARTERIAL HYPERTENSION
     Dosage: 2.5 MG, TID
     Route: 048
  5. OPSUMIT [Concomitant]
     Active Substance: MACITENTAN
     Dosage: UNK
  6. UPTRAVI [Concomitant]
     Active Substance: SELEXIPAG
     Dosage: UNK

REACTIONS (2)
  - Hospitalisation [Recovered/Resolved]
  - Lung disorder [None]

NARRATIVE: CASE EVENT DATE: 20210225
